FAERS Safety Report 10930957 (Version 1)
Quarter: 2015Q1

REPORT INFORMATION
  Report Type: Spontaneous
  Country: JP (occurrence: None)
  Receive Date: 20150317
  Receipt Date: 20150317
  Transmission Date: 20150721
  Serious: Yes (Life-Threatening)
  Sender: FDA-Public Use
  Company Number: JP-20150033

PATIENT
  Age: 63 Year
  Sex: Male

DRUGS (3)
  1. IOPAMIRON (IOPAMIDOIL) [Concomitant]
  2. CISPLATIN. [Concomitant]
     Active Substance: CISPLATIN
  3. LIPIODOL ULTRA-FLUIDE [Suspect]
     Active Substance: ETHIODIZED OIL
     Indication: REGIONAL CHEMOTHERAPY
     Route: 013

REACTIONS (7)
  - Respiratory depression [None]
  - Arteriospasm coronary [None]
  - Anaphylactic shock [None]
  - Loss of consciousness [None]
  - Product use issue [None]
  - Blood pressure decreased [None]
  - Flushing [None]
